FAERS Safety Report 8863214 (Version 1)
Quarter: 2012Q4

REPORT INFORMATION
  Report Type: Report from Study
  Country: US (occurrence: US)
  Receive Date: 20121025
  Receipt Date: 20121025
  Transmission Date: 20130627
  Serious: No
  Sender: FDA-Public Use
  Company Number: US-ABBOTT-12P-163-0893056-00

PATIENT
  Age: 44 None
  Sex: Female

DRUGS (3)
  1. LUPRON DEPOT 3.75 MG [Suspect]
     Indication: PELVIC INFLAMMATORY DISEASE
     Route: 050
     Dates: start: 201104, end: 201106
  2. LUPRON DEPOT 3.75 MG [Suspect]
     Route: 050
  3. PAXIL [Concomitant]
     Indication: PRODUCT USED FOR UNKNOWN INDICATION

REACTIONS (3)
  - Hot flush [Not Recovered/Not Resolved]
  - Anxiety [Not Recovered/Not Resolved]
  - Sensory disturbance [Not Recovered/Not Resolved]
